FAERS Safety Report 5282476-3 (Version None)
Quarter: 2007Q1

REPORT INFORMATION
  Report Type: 
  Country: None (occurrence: None)
  Receive Date: 20070326
  Receipt Date: 20070319
  Transmission Date: 20070707
  Serious: Yes (Hospitalization)
  Sender: FDA-Public Use
  Company Number: 070033

PATIENT
  Age: 79 Year
  Sex: Female
  Weight: 69.8539 kg

DRUGS (14)
  1. HALFLYTELY [Suspect]
     Indication: COLONOSCOPY
     Dosage: 20MG, 1X, PO
     Route: 048
     Dates: start: 20070201
  2. PEPCID [Concomitant]
  3. PLAVIX [Concomitant]
  4. VERAPAMIL [Concomitant]
  5. ZETIA [Concomitant]
  6. ALPRAZOLAM [Concomitant]
  7. ASCORBIC ACID [Concomitant]
  8. GARLIC TABLETS (SOFT GEL) [Concomitant]
  9. FOLIC ACID [Concomitant]
  10. ISOSORB MONO [Concomitant]
  11. COQ10 [Concomitant]
  12. OSCO500+D CALCIUM [Concomitant]
  13. MULTI-VITAMIN [Concomitant]
  14. MULTI MINERAL [Concomitant]

REACTIONS (3)
  - BRONCHITIS [None]
  - COLITIS ISCHAEMIC [None]
  - SYNCOPE [None]
